FAERS Safety Report 6137365-9 (Version None)
Quarter: 2009Q1

REPORT INFORMATION
  Report Type: 
  Country: None (occurrence: None)
  Receive Date: 20090325
  Receipt Date: 20080814
  Transmission Date: 20090719
  Serious: Yes (Hospitalization)
  Sender: FDA-Public Use
  Company Number: ACETADOTE_036

PATIENT
  Sex: Female

DRUGS (1)
  1. ACETADOTE [Suspect]
     Indication: OVERDOSE
     Dosage: INTRAVENOUS INFUSION
     Route: 042

REACTIONS (2)
  - INFUSION SITE EXFOLIATION [None]
  - INFUSION SITE IRRITATION [None]
